FAERS Safety Report 7540148-6 (Version None)
Quarter: 2011Q2

REPORT INFORMATION
  Report Type: 
  Country: None (occurrence: None)
  Receive Date: 20110610
  Receipt Date: 20110602
  Transmission Date: 20111010
  Serious: Yes (Hospitalization, Disabling)
  Sender: FDA-Public Use
  Company Number: US-B.I. PHARMACEUTICALS,INC./RIDGEFIELD-2011-BP-07070BP

PATIENT
  Sex: Female
  Weight: 82.55 kg

DRUGS (23)
  1. METOPROLOL SUCCINATE EXTENDED RELEASE [Concomitant]
     Dosage: 50 MG
  2. COQ10 [Concomitant]
     Dosage: 100 MG
  3. FEXOFENADINE [Concomitant]
     Dosage: 180 MG
  4. BIOTIN [Concomitant]
     Dosage: 100 MG
  5. VYTORIN [Concomitant]
  6. NITROGLYCERIN [Concomitant]
  7. TIKOSYN [Concomitant]
     Dosage: 250 MCG
     Dates: start: 20110102
  8. ADVAIR DISKUS 100/50 [Concomitant]
     Route: 055
  9. ASPIRIN [Concomitant]
     Dosage: 81 MG
  10. PREDNISONE [Concomitant]
     Dosage: 30 MG
  11. PRADAXA [Suspect]
     Indication: ATRIAL FIBRILLATION
     Dosage: 300 MG
     Dates: start: 20110102, end: 20110113
  12. VIT D [Concomitant]
     Dosage: 200 U
  13. XOPENEX [Concomitant]
  14. N-ACETYL-L-CYSTENE [Concomitant]
     Dosage: 1800 MG
  15. DIGOXIN [Concomitant]
     Dosage: 0.125 MG
  16. DIOVAN [Concomitant]
     Dosage: 80 MG
  17. FUROSEMIDE [Concomitant]
     Dosage: 20 MG
  18. CALCIUM CARBONATE [Concomitant]
     Dosage: 1500 MG
  19. METFORMIN HCL [Concomitant]
     Dosage: 2000 MG
  20. FLAXSEED OIL [Concomitant]
     Dosage: 1000 MG
  21. NEURONTIN [Concomitant]
     Dosage: 200 MG
  22. PREVACID [Concomitant]
     Dosage: 60 MG
  23. INSULIN [Concomitant]

REACTIONS (7)
  - ARTHRALGIA [None]
  - GAIT DISTURBANCE [None]
  - DYSPNOEA [None]
  - THROAT TIGHTNESS [None]
  - DYSPEPSIA [None]
  - HAEMORRHAGE [None]
  - OEDEMA PERIPHERAL [None]
